FAERS Safety Report 8177748-9 (Version None)
Quarter: 2012Q1

REPORT INFORMATION
  Report Type: 
  Country: None (occurrence: None)
  Receive Date: 20120301
  Receipt Date: 20120223
  Transmission Date: 20120608
  Serious: Yes (Other)
  Sender: FDA-Public Use
  Company Number: CA-JNJFOC-20120212268

PATIENT
  Age: 72 Year
  Sex: Female

DRUGS (4)
  1. METHOTREXATE [Concomitant]
     Route: 065
  2. REMICADE [Suspect]
     Route: 042
  3. PREDNISONE [Concomitant]
     Route: 065
  4. REMICADE [Suspect]
     Indication: RETINOPATHY
     Route: 042

REACTIONS (1)
  - ATYPICAL MYCOBACTERIAL INFECTION [None]
